FAERS Safety Report 25940354 (Version 2)
Quarter: 2025Q4

REPORT INFORMATION
  Report Type: Report from Study
  Country: US (occurrence: US)
  Receive Date: 20251020
  Receipt Date: 20251119
  Transmission Date: 20260118
  Serious: Yes (Hospitalization)
  Sender: PARATEK PHARMACEUTICALS
  Company Number: US-PARATEK PHARMACEUTICALS, INC.-2025PTK01320

PATIENT
  Sex: Male
  Weight: 90.6 kg

DRUGS (21)
  1. NUZYRA [Suspect]
     Active Substance: OMADACYCLINE
     Indication: Device related infection
     Dosage: 450 MG, 1X/DAY FOR TWO DAYS
     Route: 048
     Dates: start: 202504, end: 202504
  2. NUZYRA [Suspect]
     Active Substance: OMADACYCLINE
     Indication: Pathogen resistance
     Dosage: 300 MG, 1X/DAY
     Route: 048
     Dates: start: 202504, end: 20250927
  3. NUZYRA [Suspect]
     Active Substance: OMADACYCLINE
     Indication: Escherichia infection
     Dosage: 300 MG, 1X/DAY
     Route: 048
     Dates: start: 20251018
  4. NUZYRA [Suspect]
     Active Substance: OMADACYCLINE
     Indication: Sepsis
  5. ASPIRIN [Concomitant]
     Active Substance: ASPIRIN
  6. FOLIC ACID [Concomitant]
     Active Substance: FOLIC ACID
  7. IRON [Concomitant]
     Active Substance: IRON
  8. MELATONIN [Concomitant]
     Active Substance: MELATONIN
  9. VITAMINS [Concomitant]
     Active Substance: VITAMINS
  10. VITAMIN D [Concomitant]
     Active Substance: VITAMIN D NOS
  11. ZINC [Concomitant]
     Active Substance: ZINC
  12. TAMSULOSIN [Concomitant]
     Active Substance: TAMSULOSIN
  13. URSODIOL [Concomitant]
     Active Substance: URSODIOL
  14. TIZANIDINE [Concomitant]
     Active Substance: TIZANIDINE
  15. DULOXETINE [Concomitant]
     Active Substance: DULOXETINE
  16. ESCITALOPRAM [Concomitant]
     Active Substance: ESCITALOPRAM OXALATE
  17. MIRTAZAPINE [Concomitant]
     Active Substance: MIRTAZAPINE
  18. DUTASTERIDE [Concomitant]
     Active Substance: DUTASTERIDE
  19. OMEPRAZOLE [Concomitant]
     Active Substance: OMEPRAZOLE
  20. ALPRAZOLAM [Concomitant]
     Active Substance: ALPRAZOLAM
  21. NURTEC ODT [Concomitant]
     Active Substance: RIMEGEPANT SULFATE

REACTIONS (3)
  - Cholangiocarcinoma [Recovering/Resolving]
  - Incorrect product administration duration [Not Recovered/Not Resolved]
  - Off label use [Not Recovered/Not Resolved]

NARRATIVE: CASE EVENT DATE: 20250101
